FAERS Safety Report 18076957 (Version 2)
Quarter: 2020Q3

REPORT INFORMATION
  Report Type: Report from Study
  Country: US (occurrence: US)
  Receive Date: 20200727
  Receipt Date: 20200802
  Transmission Date: 20201103
  Serious: Yes (Death, Hospitalization)
  Sender: FDA-Public Use
  Company Number: US-EISAI MEDICAL RESEARCH-EC-2020-076280

PATIENT
  Age: 62 Year
  Sex: Female
  Weight: 104.8 kg

DRUGS (14)
  1. ACETAMINOPHEN. [Concomitant]
     Active Substance: ACETAMINOPHEN
     Dates: start: 20100101
  2. PEMBROLIZUMAB. [Suspect]
     Active Substance: PEMBROLIZUMAB
     Indication: ENDOMETRIAL CANCER
     Route: 041
     Dates: start: 20200326, end: 20200326
  3. SINGULAIR [Concomitant]
     Active Substance: MONTELUKAST SODIUM
     Dates: start: 20160101
  4. LENVATINIB [Suspect]
     Active Substance: LENVATINIB
     Indication: ENDOMETRIAL CANCER
     Route: 048
     Dates: start: 20200326, end: 20200417
  5. PROVENTIL [Concomitant]
     Active Substance: ALBUTEROL
     Dates: start: 20160101
  6. DULOXETINE HYDROCHLORIDE. [Concomitant]
     Active Substance: DULOXETINE HYDROCHLORIDE
     Dates: start: 20200101
  7. LIDOCAINE (+) PRILOCAINE [Concomitant]
     Dates: start: 20200323
  8. PREDNISONE. [Concomitant]
     Active Substance: PREDNISONE
     Dates: start: 20200416, end: 20200430
  9. ACETAMINOPHEN (+) DIPHENHYDRAMINE HYDROCHLORIDE [Concomitant]
     Active Substance: ACETAMINOPHEN\DIPHENHYDRAMINE HYDROCHLORIDE
     Dates: start: 20200101
  10. OLMESARTAN MEDOXOMIL. [Concomitant]
     Active Substance: OLMESARTAN MEDOXOMIL
     Dates: start: 20200417, end: 20200505
  11. FLUTICASONE. [Concomitant]
     Active Substance: FLUTICASONE
     Dates: start: 20160101
  12. LENVATINIB [Suspect]
     Active Substance: LENVATINIB
     Route: 048
     Dates: start: 20200501, end: 20200531
  13. VITAMINS [Concomitant]
     Active Substance: VITAMINS
     Dates: start: 20120101
  14. BENEFIBER [Concomitant]
     Active Substance: STARCH, WHEAT
     Dates: start: 20200409

REACTIONS (1)
  - Dyspnoea [Not Recovered/Not Resolved]

NARRATIVE: CASE EVENT DATE: 20200430
